FAERS Safety Report 5957063-1 (Version None)
Quarter: 2008Q4

REPORT INFORMATION
  Report Type: 
  Country: None (occurrence: None)
  Receive Date: 20081118
  Receipt Date: 20081104
  Transmission Date: 20090506
  Serious: Yes (Other)
  Sender: FDA-Public Use
  Company Number: PHHY2008BR27224

PATIENT
  Age: 74 Year
  Sex: Male
  Weight: 88 kg

DRUGS (5)
  1. FORASEQ [Suspect]
     Indication: COUGH
     Dosage: 12/400MCG 2 INHALATION WITH EACH ACTIVE COMPONENT A DAY (MORNING/NIGHT)
     Dates: start: 20050101
  2. FORASEQ [Suspect]
     Indication: INFLUENZA
  3. FORASEQ [Suspect]
     Indication: BRONCHITIS
  4. GLYBURIDE [Concomitant]
     Indication: DIABETES MELLITUS
     Dosage: UNK
     Route: 048
     Dates: start: 19980101
  5. VITAMIN B COMPLEX CAP [Concomitant]
     Indication: DIABETES MELLITUS
     Dosage: 1 TABLET DAILY
     Route: 048
     Dates: start: 20060101

REACTIONS (7)
  - BRONCHITIS [None]
  - CONFUSIONAL STATE [None]
  - COUGH [None]
  - DRUG INEFFECTIVE [None]
  - GINGIVAL PAIN [None]
  - INFLUENZA [None]
  - PYREXIA [None]
